FAERS Safety Report 23832796 (Version 1)
Quarter: 2024Q2

REPORT INFORMATION
  Report Type: Spontaneous
  Country: US (occurrence: None)
  Receive Date: 20240507
  Receipt Date: 20240507
  Transmission Date: 20240716
  Serious: Yes (Hospitalization)
  Sender: FDA-Public Use
  Company Number: None

PATIENT
  Sex: Female

DRUGS (4)
  1. SILDENAFIL CITRATE [Suspect]
     Active Substance: SILDENAFIL CITRATE
     Indication: Pulmonary arterial hypertension
     Dosage: OTHER FREQUENCY : EVERY8HOURS;?
     Route: 048
     Dates: start: 202201
  2. ORENITRAM ER [Concomitant]
  3. OPSUMIT [Concomitant]
  4. OFEV [Concomitant]
     Indication: Interstitial lung disease

REACTIONS (1)
  - Lung transplant [None]
